FAERS Safety Report 6648490-8 (Version None)
Quarter: 2010Q1

REPORT INFORMATION
  Report Type: 
  Country: None (occurrence: None)
  Receive Date: 20100319
  Receipt Date: 20100311
  Transmission Date: 20100710
  Serious: Yes (Hospitalization, Other)
  Sender: FDA-Public Use
  Company Number: 2010SP015474

PATIENT
  Age: 75 Year
  Sex: Male

DRUGS (2)
  1. ONCOTICE [Suspect]
     Indication: BLADDER CANCER
  2. PREDNISONE TAB [Concomitant]

REACTIONS (8)
  - AORTIC ANEURYSM [None]
  - ARTERIOSCLEROSIS [None]
  - DECREASED APPETITE [None]
  - HAEMATOMA [None]
  - MYCOBACTERIAL INFECTION [None]
  - MYCOTIC ANEURYSM [None]
  - SEPSIS [None]
  - VASCULAR PSEUDOANEURYSM [None]
